FAERS Safety Report 20627262 (Version 2)
Quarter: 2022Q1

REPORT INFORMATION
  Report Type: Report from Study
  Country: CA (occurrence: CA)
  Receive Date: 20220323
  Receipt Date: 20220331
  Transmission Date: 20220423
  Serious: No
  Sender: FDA-Public Use
  Company Number: CA-GLAXOSMITHKLINE-CA2022050220

PATIENT
  Sex: Male

DRUGS (1)
  1. MEPOLIZUMAB [Suspect]
     Active Substance: MEPOLIZUMAB
     Indication: Asthma
     Dosage: 100 MG, EVERY 4 WEEKS
     Route: 058
     Dates: start: 20180808

REACTIONS (4)
  - Lower respiratory tract infection [Recovered/Resolved]
  - Malaise [Unknown]
  - Inappropriate schedule of product administration [Unknown]
  - Product dose omission issue [Unknown]
